FAERS Safety Report 20557464 (Version 1)
Quarter: 2022Q1

REPORT INFORMATION
  Report Type: Spontaneous
  Country: BE (occurrence: None)
  Receive Date: 20220307
  Receipt Date: 20220307
  Transmission Date: 20220424
  Serious: Yes (Death, Other)
  Sender: FDA-Public Use
  Company Number: BE-MICRO LABS LIMITED-ML2022-00702

PATIENT
  Age: 83 Year
  Sex: Female

DRUGS (5)
  1. APIXABAN [Suspect]
     Active Substance: APIXABAN
     Indication: Anticoagulant therapy
     Dosage: 5 MG TWICE A DAY (BID)
  2. PRIVIGEN [Concomitant]
     Active Substance: HUMAN IMMUNOGLOBULIN G
     Indication: Thrombosis with thrombocytopenia syndrome
     Route: 042
  3. PRIVIGEN [Concomitant]
     Active Substance: HUMAN IMMUNOGLOBULIN G
     Dosage: ON DAY 2 AND 3, AT THE DOSE OF 60 GRAMS PER DAY FOR A TOTAL IVIG DOSE OF 135 GRAMS CORRESPONDING TO
     Route: 042
  4. METHYLPREDNISOLONE [Concomitant]
     Active Substance: METHYLPREDNISOLONE
     Indication: Thrombosis with thrombocytopenia syndrome
  5. MOXIFLOXACIN. [Concomitant]
     Indication: Moraxella infection
     Dosage: ORAL MOXIFLOXACIN 400 MG OD FOR 5 DAYS
     Route: 048

REACTIONS (1)
  - Adrenal haematoma [Fatal]
